FAERS Safety Report 5243998-4 (Version None)
Quarter: 2007Q1

REPORT INFORMATION
  Report Type: 
  Country: None (occurrence: None)
  Receive Date: 20070222
  Receipt Date: 20070219
  Transmission Date: 20070707
  Serious: Yes (Life-Threatening)
  Sender: FDA-Public Use
  Company Number: 2007AP00751

PATIENT
  Age: 30439 Day
  Sex: Male

DRUGS (9)
  1. SEROQUEL [Suspect]
     Indication: DEMENTIA ALZHEIMER'S TYPE
     Route: 048
     Dates: start: 20070118, end: 20070118
  2. CEROCRAL [Concomitant]
     Route: 048
  3. SIGMART [Concomitant]
     Route: 048
  4. NITOROL R [Concomitant]
     Route: 048
  5. BUFFERIN [Concomitant]
     Route: 048
  6. GRANDAXIN [Concomitant]
     Route: 048
  7. BLOPRESS [Concomitant]
     Route: 048
  8. ARICEPT [Concomitant]
  9. ZOPICOOL [Concomitant]
     Indication: DEMENTIA ALZHEIMER'S TYPE
     Route: 048
     Dates: start: 20070118

REACTIONS (1)
  - SHOCK [None]
